FAERS Safety Report 7942960-8 (Version None)
Quarter: 2011Q4

REPORT INFORMATION
  Report Type: 
  Country: None (occurrence: None)
  Receive Date: 20111114
  Receipt Date: 20111011
  Transmission Date: 20120403
  Serious: No
  Sender: FDA-Public Use
  Company Number: 1000024608

PATIENT
  Age: 49 Year
  Sex: Female

DRUGS (4)
  1. XANAX [Concomitant]
  2. FLEXERIL (CYCLOBENZAPRINE) (CYCLOBENZAPRINE) [Concomitant]
  3. NEURONTIN [Concomitant]
  4. SAVELLA [Suspect]
     Indication: FIBROMYALGIA
     Dosage: 12.5 MG (12.5 MG, 1 IN 1 D), ORAL ; 25 MG (12.5 MG, 2 IN 1 D), ORAL; 50 MG (25 MG, 2 IN 1 D), ORAL;
     Route: 048
     Dates: start: 20110701, end: 20110701

REACTIONS (1)
  - MIGRAINE [None]
